FAERS Safety Report 18405330 (Version 2)
Quarter: 2020Q4

REPORT INFORMATION
  Report Type: Spontaneous
  Country: JP (occurrence: JP)
  Receive Date: 20201020
  Receipt Date: 20201022
  Transmission Date: 20210114
  Serious: Yes (Death, Other)
  Sender: FDA-Public Use
  Company Number: JP-PFIZER INC-2020403624

PATIENT
  Age: 5 Decade

DRUGS (1)
  1. XELJANZ [Suspect]
     Active Substance: TOFACITINIB CITRATE
     Indication: DERMATOMYOSITIS
     Dosage: 10 MG, DAILY
     Route: 048

REACTIONS (4)
  - Off label use [Unknown]
  - Condition aggravated [Fatal]
  - Dermatomyositis [Fatal]
  - Product use in unapproved indication [Unknown]
